FAERS Safety Report 24981681 (Version 1)
Quarter: 2025Q1

REPORT INFORMATION
  Report Type: Spontaneous
  Country: US (occurrence: US)
  Receive Date: 20250218
  Receipt Date: 20250218
  Transmission Date: 20250409
  Serious: Yes (Other)
  Sender: HIKMA
  Company Number: US-MLMSERVICE-20250130-PI384745-00155-1

PATIENT
  Age: 40 Year
  Sex: Female

DRUGS (1)
  1. FLUTICASONE PROPIONATE [Suspect]
     Active Substance: FLUTICASONE PROPIONATE
     Indication: Product used for unknown indication
     Route: 045

REACTIONS (1)
  - Central serous chorioretinopathy [Recovering/Resolving]
